FAERS Safety Report 22733878 (Version 8)
Quarter: 2024Q2

REPORT INFORMATION
  Report Type: Report from Study
  Country: US (occurrence: US)
  Receive Date: 20230721
  Receipt Date: 20240628
  Transmission Date: 20240715
  Serious: No
  Sender: FDA-Public Use
  Company Number: US-ACADIA PHARMACEUTICALS INC.-ACA-2023-TRF-002599

PATIENT
  Age: 2 Year
  Sex: Female

DRUGS (8)
  1. DAYBUE [Suspect]
     Active Substance: TROFINETIDE
     Indication: Rett syndrome
     Dosage: 10 MILLILITER, BID
     Route: 048
     Dates: start: 20230605
  2. DAYBUE [Suspect]
     Active Substance: TROFINETIDE
     Dosage: 15 MILLILITER, BID
     Route: 048
  3. DAYBUE [Suspect]
     Active Substance: TROFINETIDE
     Dosage: 20 MILLILITER, BID
     Route: 048
  4. DAYBUE [Suspect]
     Active Substance: TROFINETIDE
     Dosage: 25 MILLILITER, BID
     Route: 048
  5. DAYBUE [Suspect]
     Active Substance: TROFINETIDE
     Dosage: 25 MILLILITER,BID
     Route: 048
  6. DAYBUE [Suspect]
     Active Substance: TROFINETIDE
     Dosage: 25 MILLILITER,BID
     Route: 048
  7. LEVOCARNITINE [Concomitant]
     Active Substance: LEVOCARNITINE
  8. INFANTS TYLENOL [Concomitant]
     Active Substance: ACETAMINOPHEN

REACTIONS (12)
  - Retching [Not Recovered/Not Resolved]
  - Drooling [Not Recovered/Not Resolved]
  - Product dose omission issue [Recovered/Resolved]
  - Hypotonia [Unknown]
  - Drug ineffective [Not Recovered/Not Resolved]
  - Underdose [Recovered/Resolved]
  - Vitamin D increased [Unknown]
  - Illness [Unknown]
  - Emotional distress [Not Recovered/Not Resolved]
  - Vomiting [Unknown]
  - Vomiting [Recovered/Resolved]
  - Diarrhoea [Unknown]

NARRATIVE: CASE EVENT DATE: 20230814
